FAERS Safety Report 8155482-9 (Version None)
Quarter: 2012Q1

REPORT INFORMATION
  Report Type: 
  Country: None (occurrence: None)
  Receive Date: 20120222
  Receipt Date: 20120213
  Transmission Date: 20120608
  Serious: Yes (Hospitalization)
  Sender: FDA-Public Use
  Company Number: FR-ELI_LILLY_AND_COMPANY-FR201202003432

PATIENT
  Age: 75 Year
  Sex: Female

DRUGS (3)
  1. ANTIHYPERTENSIVES [Concomitant]
     Dosage: 1 DF, QD
  2. ANTI-ASTHMATICS [Concomitant]
     Dosage: 1 DF, PRN
  3. FORTEO [Suspect]
     Indication: OSTEOPOROSIS
     Dosage: 20 UG, QD
     Route: 058
     Dates: start: 20110324

REACTIONS (1)
  - BLOOD COUNT ABNORMAL [None]
